FAERS Safety Report 23441636 (Version 1)
Quarter: 2024Q1

REPORT INFORMATION
  Report Type: Spontaneous
  Country: DE (occurrence: DE)
  Receive Date: 20240125
  Receipt Date: 20240125
  Transmission Date: 20240410
  Serious: Yes (Other)
  Sender: FDA-Public Use
  Company Number: DE-002147023-NVSC2024DE010939

PATIENT
  Age: 70 Year
  Sex: Female

DRUGS (2)
  1. DIOVAN [Suspect]
     Active Substance: VALSARTAN
     Indication: Product used for unknown indication
     Dosage: UNK
     Route: 065
  2. DIOVAN [Suspect]
     Active Substance: VALSARTAN
     Dosage: UNK (HALF TABLET IN THE MORNING AND EVENING)
     Route: 065
     Dates: end: 202312

REACTIONS (11)
  - Angina pectoris [Unknown]
  - Incorrect product administration duration [Recovered/Resolved]
  - Renal pain [Recovering/Resolving]
  - Hepatic pain [Recovering/Resolving]
  - Lymph node pain [Recovering/Resolving]
  - Blood pressure abnormal [Recovering/Resolving]
  - Blood glucose fluctuation [Recovering/Resolving]
  - Thyroid mass [Unknown]
  - Myalgia [Not Recovered/Not Resolved]
  - Headache [Recovering/Resolving]
  - Arthralgia [Not Recovered/Not Resolved]
